FAERS Safety Report 7011324-6 (Version None)
Quarter: 2010Q3

REPORT INFORMATION
  Report Type: 
  Country: None (occurrence: None)
  Receive Date: 20100922
  Receipt Date: 20100922
  Transmission Date: 20110219
  Serious: Yes (Hospitalization)
  Sender: FDA-Public Use
  Company Number: None

PATIENT
  Age: 47 Year
  Sex: Male
  Weight: 149.687 kg

DRUGS (1)
  1. NUVIGIL [Suspect]
     Indication: SLEEP DISORDER
     Dosage: 150MG ONCE PER DAY PO
     Route: 048
     Dates: start: 20100827, end: 20100915

REACTIONS (9)
  - BRADYPHRENIA [None]
  - CONFUSIONAL STATE [None]
  - DIARRHOEA [None]
  - DISORIENTATION [None]
  - DISTURBANCE IN ATTENTION [None]
  - DIZZINESS [None]
  - HYPERACUSIS [None]
  - INNER EAR DISORDER [None]
  - MEMORY IMPAIRMENT [None]
